FAERS Safety Report 16752741 (Version 2)
Quarter: 2019Q3

REPORT INFORMATION
  Report Type: Report from Study
  Country: US (occurrence: US)
  Receive Date: 20190828
  Receipt Date: 20190917
  Transmission Date: 20191005
  Serious: Yes (Hospitalization)
  Sender: FDA-Public Use
  Company Number: PHEH2019US035649

PATIENT
  Sex: Female

DRUGS (1)
  1. GILENYA [Suspect]
     Active Substance: FINGOLIMOD HYDROCHLORIDE
     Indication: MULTIPLE SCLEROSIS
     Dosage: 0.5 MG, QD
     Route: 048
     Dates: start: 20190103

REACTIONS (5)
  - Drug ineffective [Not Recovered/Not Resolved]
  - Bladder cancer [Unknown]
  - Urinary incontinence [Unknown]
  - Anal incontinence [Unknown]
  - Diarrhoea [Recovering/Resolving]
